FAERS Safety Report 8209886-6 (Version None)
Quarter: 2012Q1

REPORT INFORMATION
  Report Type: 
  Country: None (occurrence: None)
  Receive Date: 20120314
  Receipt Date: 20120309
  Transmission Date: 20120608
  Serious: Yes (Death)
  Sender: FDA-Public Use
  Company Number: BE-ROCHE-1024131

PATIENT
  Sex: Female

DRUGS (11)
  1. PANTOPRAZOLE [Concomitant]
     Dates: start: 20110801, end: 20111217
  2. ESCITALOPRAM OXALATE [Concomitant]
     Dates: start: 20111125, end: 20111217
  3. IMOVANE [Concomitant]
     Dates: start: 20111125, end: 20111217
  4. ENTEROL [Concomitant]
     Dates: start: 20111126, end: 20111217
  5. ALDACTONE [Concomitant]
     Dates: start: 20111125, end: 20111217
  6. ZOCOR [Concomitant]
     Dates: start: 20111125, end: 20111217
  7. VEMURAFENIB [Suspect]
     Indication: METASTATIC MALIGNANT MELANOMA
     Route: 048
     Dates: start: 20111109, end: 20111217
  8. LASIX [Concomitant]
     Dates: start: 20111125, end: 20111217
  9. CLINDAMYCIN HCL [Concomitant]
     Dates: start: 20111126, end: 20111217
  10. TAMBOCOR [Concomitant]
     Dates: start: 20111125, end: 20111217
  11. ENOXAPARIN SODIUM [Concomitant]
     Dates: start: 20111125, end: 20111217

REACTIONS (1)
  - SUDDEN DEATH [None]
